FAERS Safety Report 9305091 (Version 1)
Quarter: 2013Q2

REPORT INFORMATION
  Report Type: Spontaneous
  Country: CN (occurrence: None)
  Receive Date: 20130520
  Receipt Date: 20130520
  Transmission Date: 20140414
  Serious: Yes (Hospitalization)
  Sender: FDA-Public Use
  Company Number: B0892084A

PATIENT
  Age: 72 Year
  Sex: Female

DRUGS (2)
  1. LAMOTRIGINE (FORMULATION UNKNOWN) (GENERIC) (LAMOTRIGINE) [Suspect]
     Indication: NEUROMYELITIS OPTICA
  2. METHYLPREDNISOLONE [Concomitant]

REACTIONS (1)
  - Toxic epidermal necrolysis [None]
